FAERS Safety Report 11917523 (Version 2)
Quarter: 2016Q1

REPORT INFORMATION
  Report Type: Not Available
  Country: NL (occurrence: NL)
  Receive Date: 20160114
  Receipt Date: 20160205
  Transmission Date: 20160526
  Serious: Yes (Life-Threatening, Hospitalization)
  Sender: FDA-Public Use
  Company Number: NL-MUNDIPHARMA DS AND PHARMACOVIGILANCE-GBR-2016-0033414

PATIENT
  Age: 79 Year
  Sex: Female
  Weight: 72 kg

DRUGS (2)
  1. OXYCODONE HCL IR CAPSULE 5 MG [Suspect]
     Active Substance: OXYCODONE HYDROCHLORIDE
     Indication: POST HERPETIC NEURALGIA
     Dosage: 25 MG, DAILY
     Route: 065
     Dates: start: 201512
  2. PREGABALIN. [Interacting]
     Active Substance: PREGABALIN
     Indication: POST HERPETIC NEURALGIA
     Dosage: 150 MG, TID
     Route: 065
     Dates: start: 201501, end: 20151228

REACTIONS (4)
  - Drug interaction [Recovering/Resolving]
  - Fall [Unknown]
  - Somnolence [Recovering/Resolving]
  - Drug level increased [Recovering/Resolving]

NARRATIVE: CASE EVENT DATE: 201512
